FAERS Safety Report 14228010 (Version 10)
Quarter: 2018Q3

REPORT INFORMATION
  Report Type: Report from Study
  Country: US (occurrence: US)
  Receive Date: 20171127
  Receipt Date: 20180911
  Transmission Date: 20181010
  Serious: Yes (Hospitalization)
  Sender: FDA-Public Use
  Company Number: US-SA-2017SA233828

PATIENT
  Age: 16 Year
  Sex: Female
  Weight: 58.7 kg

DRUGS (2)
  1. DUPILUMAB [Suspect]
     Active Substance: DUPILUMAB
     Indication: DERMATITIS ATOPIC
     Dosage: 300 MG,1X
     Route: 058
     Dates: start: 20171012, end: 20171012
  2. DUPILUMAB [Suspect]
     Active Substance: DUPILUMAB
     Dosage: 200 MG,QOW
     Route: 058
     Dates: start: 201710, end: 20180705

REACTIONS (1)
  - Injection site oedema [Recovered/Resolved]

NARRATIVE: CASE EVENT DATE: 20171115
